FAERS Safety Report 15681231 (Version 4)
Quarter: 2019Q1

REPORT INFORMATION
  Report Type: Report from Study
  Country: KR (occurrence: KR)
  Receive Date: 20181203
  Receipt Date: 20190114
  Transmission Date: 20190417
  Serious: Yes (Hospitalization)
  Sender: FDA-Public Use
  Company Number: KR-SAKK-2018SA323004AA

PATIENT
  Age: 57 Year
  Sex: Male

DRUGS (1)
  1. INSULIN GLARGINE/LIXISENATIDE [Suspect]
     Active Substance: INSULIN GLARGINE\LIXISENATIDE
     Indication: DIABETES MELLITUS
     Dosage: 26 U, QD
     Route: 058
     Dates: start: 20180904

REACTIONS (3)
  - Injection site pain [Recovered/Resolved]
  - Hyperglycaemia [Not Recovered/Not Resolved]
  - Rib fracture [Recovered/Resolved]

NARRATIVE: CASE EVENT DATE: 201811
